FAERS Safety Report 24694076 (Version 1)
Quarter: 2024Q4

REPORT INFORMATION
  Report Type: Report from Study
  Country: IT (occurrence: IT)
  Receive Date: 20241204
  Receipt Date: 20241204
  Transmission Date: 20250115
  Serious: Yes (Other)
  Sender: INSMED
  Company Number: IT-INSMED, INC.-2024-03952-IT

PATIENT
  Sex: Female

DRUGS (2)
  1. ARIKAYCE [Suspect]
     Active Substance: AMIKACIN
     Indication: Mycobacterium avium complex infection
     Dosage: UNK, QD
     Route: 055
     Dates: start: 202409, end: 20240930
  2. ARIKAYCE [Suspect]
     Active Substance: AMIKACIN
     Dosage: UNK, QD
     Route: 055
     Dates: start: 20241010, end: 20241108

REACTIONS (8)
  - Cyanosis [Unknown]
  - Transaminases increased [Not Recovered/Not Resolved]
  - Haematoma [Unknown]
  - Epistaxis [Not Recovered/Not Resolved]
  - Dysphonia [Not Recovered/Not Resolved]
  - Dyspnoea [Not Recovered/Not Resolved]
  - Therapy interrupted [Unknown]
  - Device physical property issue [Unknown]

NARRATIVE: CASE EVENT DATE: 20240101
